FAERS Safety Report 9845823 (Version 2)
Quarter: 2014Q1

REPORT INFORMATION
  Report Type: Spontaneous
  Country: US (occurrence: US)
  Receive Date: 20140127
  Receipt Date: 20140204
  Transmission Date: 20141002
  Serious: No
  Sender: FDA-Public Use
  Company Number: US-PFIZER INC-2014023654

PATIENT
  Age: 43 Year
  Sex: Male
  Weight: 68.03 kg

DRUGS (18)
  1. LYRICA [Suspect]
     Indication: DIABETIC NEUROPATHY
     Dosage: 75 MG, 2X/DAY
     Route: 048
     Dates: start: 201211, end: 201401
  2. XANAX [Concomitant]
     Indication: ANXIETY
     Dosage: UNK
  3. EFFIENT [Concomitant]
     Dosage: UNK
  4. CRESTOR [Concomitant]
     Dosage: UNK
  5. ZANTAC [Concomitant]
     Dosage: UNK
  6. HYDROCODONE [Concomitant]
     Dosage: UNK
  7. METOPROLOL [Concomitant]
     Dosage: UNK
  8. ISOSORBIDE MONONITRATE [Concomitant]
     Dosage: UNK
  9. ACETYLSALICYLIC ACID [Concomitant]
     Dosage: UNK
  10. VITAMIN D3 [Concomitant]
     Dosage: UNK
  11. VITAMIN B12 [Concomitant]
     Dosage: UNK
  12. COQ-10 [Concomitant]
     Dosage: UNK
  13. FISH OIL [Concomitant]
     Dosage: UNK
  14. GLUCOSAMINE [Concomitant]
     Dosage: UNK
  15. NIACIN [Concomitant]
     Dosage: UNK
  16. VITAMIN B6 [Concomitant]
     Dosage: UNK
  17. VITAMIN C [Concomitant]
     Dosage: UNK
  18. MULTIVITAMINS [Concomitant]
     Dosage: UNK

REACTIONS (1)
  - Withdrawal syndrome [Not Recovered/Not Resolved]
